FAERS Safety Report 24911490 (Version 2)
Quarter: 2025Q1

REPORT INFORMATION
  Report Type: Spontaneous
  Country: US (occurrence: US)
  Receive Date: 20250131
  Receipt Date: 20250217
  Transmission Date: 20250409
  Serious: Yes (Other)
  Sender: ELI LILLY AND COMPANY
  Company Number: US-ELI_LILLY_AND_COMPANY-US202501014321

PATIENT
  Age: 49 Year
  Sex: Female

DRUGS (16)
  1. MOUNJARO [Suspect]
     Active Substance: TIRZEPATIDE
     Indication: Type 1 diabetes mellitus
     Route: 065
     Dates: start: 202404
  2. MOUNJARO [Suspect]
     Active Substance: TIRZEPATIDE
     Indication: Type 1 diabetes mellitus
     Route: 065
     Dates: start: 202404
  3. MOUNJARO [Suspect]
     Active Substance: TIRZEPATIDE
     Indication: Type 1 diabetes mellitus
     Route: 065
     Dates: start: 202404
  4. MOUNJARO [Suspect]
     Active Substance: TIRZEPATIDE
     Indication: Type 1 diabetes mellitus
     Route: 065
     Dates: start: 202404
  5. MOUNJARO [Suspect]
     Active Substance: TIRZEPATIDE
     Indication: Type 1 diabetes mellitus
     Route: 065
  6. MOUNJARO [Suspect]
     Active Substance: TIRZEPATIDE
     Indication: Type 1 diabetes mellitus
     Route: 065
  7. MOUNJARO [Suspect]
     Active Substance: TIRZEPATIDE
     Indication: Type 1 diabetes mellitus
     Route: 065
  8. MOUNJARO [Suspect]
     Active Substance: TIRZEPATIDE
     Indication: Type 1 diabetes mellitus
     Route: 065
  9. MOUNJARO [Suspect]
     Active Substance: TIRZEPATIDE
     Indication: Type 1 diabetes mellitus
     Route: 065
  10. MOUNJARO [Suspect]
     Active Substance: TIRZEPATIDE
     Indication: Type 1 diabetes mellitus
     Route: 065
  11. MOUNJARO [Suspect]
     Active Substance: TIRZEPATIDE
     Indication: Type 1 diabetes mellitus
     Route: 065
  12. MOUNJARO [Suspect]
     Active Substance: TIRZEPATIDE
     Indication: Type 1 diabetes mellitus
     Route: 065
  13. MOUNJARO [Suspect]
     Active Substance: TIRZEPATIDE
     Indication: Type 1 diabetes mellitus
     Route: 065
  14. MOUNJARO [Suspect]
     Active Substance: TIRZEPATIDE
     Indication: Type 1 diabetes mellitus
     Route: 065
  15. MOUNJARO [Suspect]
     Active Substance: TIRZEPATIDE
     Indication: Type 1 diabetes mellitus
     Route: 065
  16. MOUNJARO [Suspect]
     Active Substance: TIRZEPATIDE
     Indication: Type 1 diabetes mellitus
     Route: 065

REACTIONS (8)
  - Loss of consciousness [Unknown]
  - Tendon injury [Recovering/Resolving]
  - Gastrointestinal disorder [Not Recovered/Not Resolved]
  - Taste disorder [Unknown]
  - Decreased appetite [Recovering/Resolving]
  - Dyspepsia [Unknown]
  - Nausea [Unknown]
  - Off label use [Unknown]

NARRATIVE: CASE EVENT DATE: 20240101
